FAERS Safety Report 24350439 (Version 1)
Quarter: 2024Q3

REPORT INFORMATION
  Report Type: Spontaneous
  Country: US (occurrence: US)
  Receive Date: 20240923
  Receipt Date: 20240923
  Transmission Date: 20241016
  Serious: No
  Sender: AUROBINDO
  Company Number: US-AUROBINDO-AUR-APL-2024-040771

PATIENT
  Age: 49 Year
  Sex: Male

DRUGS (1)
  1. LENALIDOMIDE [Suspect]
     Active Substance: LENALIDOMIDE
     Indication: Product used for unknown indication
     Dosage: UNK, CYCLICAL (DAILY ON DAYS 1-21 OF 28 DAY CYCLE)
     Route: 065

REACTIONS (2)
  - Treatment delayed [Unknown]
  - Treatment noncompliance [Unknown]
